FAERS Safety Report 16499895 (Version 1)
Quarter: 2019Q3

REPORT INFORMATION
  Report Type: Spontaneous
  Country: IT (occurrence: IT)
  Receive Date: 20190701
  Receipt Date: 20190701
  Transmission Date: 20191004
  Serious: Yes (Other)
  Sender: FDA-Public Use
  Company Number: IT-TEVA-2019-IT-1070955

PATIENT
  Age: 73 Year
  Sex: Female
  Weight: 81 kg

DRUGS (1)
  1. CIPROFLOXACINA RATIOPHARM 500 MG COMPRESSE RIVESTITE CON FILM [Suspect]
     Active Substance: CIPROFLOXACIN HYDROCHLORIDE
     Indication: URINARY TRACT INFECTION
     Route: 048
     Dates: start: 20190604, end: 20190613

REACTIONS (1)
  - Hypercreatininaemia [Recovering/Resolving]

NARRATIVE: CASE EVENT DATE: 20190613
